FAERS Safety Report 15390671 (Version 1)
Quarter: 2018Q3

REPORT INFORMATION
  Report Type: Spontaneous
  Country: US (occurrence: US)
  Receive Date: 20180909
  Receipt Date: 20180909
  Transmission Date: 20181010
  Serious: No
  Sender: FDA-Public Use
  Company Number: None

PATIENT
  Age: 25 Year
  Sex: Male
  Weight: 69.75 kg

DRUGS (1)
  1. DEXTROAMPHETAMINE SULFATE ER 10MG, GENERIC FOR: DEXEDRINE [Suspect]
     Active Substance: DEXTROAMPHETAMINE SULFATE
     Indication: ATTENTION DEFICIT/HYPERACTIVITY DISORDER
     Dosage: ?          QUANTITY:30 DF DOSAGE FORM;?
     Route: 048

REACTIONS (3)
  - Anxiety [None]
  - Treatment failure [None]
  - Fatigue [None]

NARRATIVE: CASE EVENT DATE: 20180814
